FAERS Safety Report 9004393 (Version 1)
Quarter: 2013Q1

REPORT INFORMATION
  Report Type: Spontaneous
  Country: US (occurrence: None)
  Receive Date: 20130104
  Receipt Date: 20130104
  Transmission Date: 20140127
  Serious: Yes (Hospitalization)
  Sender: FDA-Public Use
  Company Number: None

PATIENT
  Sex: Female
  Weight: 58.51 kg

DRUGS (1)
  1. PROLIA [Suspect]
     Indication: BONE DISORDER
     Dosage: INJECTION, DON^T KNOW HOW MUCH  ONCE/AUG 29
     Dates: start: 20120829

REACTIONS (4)
  - Chills [None]
  - Aphagia [None]
  - Malaise [None]
  - Gastrointestinal pain [None]
